FAERS Safety Report 5963969-X (Version None)
Quarter: 2008Q4

REPORT INFORMATION
  Report Type: 
  Country: None (occurrence: None)
  Receive Date: 20081124
  Receipt Date: 20081118
  Transmission Date: 20090506
  Serious: Yes (Life-Threatening)
  Sender: FDA-Public Use
  Company Number: FR-ASTRAZENECA-2008CG01695

PATIENT
  Age: 939 Month
  Sex: Female

DRUGS (4)
  1. CRESTOR [Suspect]
     Indication: DYSLIPIDAEMIA
     Route: 048
     Dates: start: 20080415, end: 20080530
  2. RENITEC [Suspect]
     Indication: HYPERTENSION
     Route: 048
     Dates: end: 20080530
  3. PREVISCAN [Suspect]
     Indication: PHLEBITIS
     Route: 048
     Dates: start: 20080401, end: 20080530
  4. LASIX [Suspect]
     Route: 048

REACTIONS (1)
  - RENAL FAILURE ACUTE [None]
